FAERS Safety Report 4558574-6 (Version None)
Quarter: 2005Q1

REPORT INFORMATION
  Report Type: 
  Country: None (occurrence: None)
  Receive Date: 20050121
  Receipt Date: 20021108
  Transmission Date: 20050727
  Serious: Yes (Life-Threatening, Hospitalization, Disabling)
  Sender: FDA-Public Use
  Company Number: US-ROCHE-325286

PATIENT
  Age: 16 Year
  Sex: Male
  Weight: 72.6 kg

DRUGS (1)
  1. ACCUTANE [Suspect]
     Indication: ACNE
     Route: 065
     Dates: start: 19850615, end: 19850615

REACTIONS (18)
  - AGGRESSION [None]
  - BONE MARROW TRANSPLANT [None]
  - CHRONIC MYELOID LEUKAEMIA [None]
  - COLLAPSE OF LUNG [None]
  - ENDOCRINE DISORDER [None]
  - GRAFT VERSUS HOST DISEASE [None]
  - HEPATIC CIRRHOSIS [None]
  - HYPERSPLENISM [None]
  - HYPERVITAMINOSIS A [None]
  - ILL-DEFINED DISORDER [None]
  - LIPOHYPERTROPHY [None]
  - METABOLIC DISORDER [None]
  - MOOD ALTERED [None]
  - MYELOFIBROSIS [None]
  - SPLEEN DISORDER [None]
  - STRESS [None]
  - VIRAL LOAD [None]
  - VITAMIN A INCREASED [None]
